FAERS Safety Report 25457597 (Version 1)
Quarter: 2025Q2

REPORT INFORMATION
  Report Type: Spontaneous
  Country: US (occurrence: US)
  Receive Date: 20250619
  Receipt Date: 20250619
  Transmission Date: 20250717
  Serious: No
  Sender: ABBVIE
  Company Number: US-ABBVIE-6324754

PATIENT
  Sex: Female

DRUGS (1)
  1. BOTOX COSMETIC [Suspect]
     Active Substance: ONABOTULINUMTOXINA
     Indication: Skin cosmetic procedure
     Route: 065
     Dates: start: 202506, end: 202506

REACTIONS (5)
  - Dizziness [Unknown]
  - Fatigue [Unknown]
  - Swelling [Unknown]
  - Influenza like illness [Unknown]
  - Headache [Unknown]
